FAERS Safety Report 7747764-7 (Version None)
Quarter: 2011Q3

REPORT INFORMATION
  Report Type: 
  Country: None (occurrence: None)
  Receive Date: 20110913
  Receipt Date: 20110909
  Transmission Date: 20111222
  Serious: Yes (Other)
  Sender: FDA-Public Use
  Company Number: VE-ROCHE-801831

PATIENT
  Sex: Female
  Weight: 62 kg

DRUGS (2)
  1. AVASTIN [Suspect]
     Indication: COLON CANCER
     Dosage: FREQUENCY: CYCLIC
     Route: 042
     Dates: start: 20110727
  2. XELODA [Suspect]
     Indication: COLON CANCER
     Route: 048
     Dates: start: 20110727, end: 20110827

REACTIONS (2)
  - HYPERTENSION [None]
  - PALMAR-PLANTAR ERYTHRODYSAESTHESIA SYNDROME [None]
